FAERS Safety Report 9699041 (Version 2)
Quarter: 2013Q4

REPORT INFORMATION
  Report Type: Spontaneous
  Country: US (occurrence: US)
  Receive Date: 20131120
  Receipt Date: 20131120
  Transmission Date: 20140711
  Serious: Yes (Other)
  Sender: FDA-Public Use
  Company Number: US-BRISTOL-MYERS SQUIBB COMPANY-19666932

PATIENT
  Age: 86 Year
  Sex: Female
  Weight: 49.89 kg

DRUGS (10)
  1. ELIQUIS [Suspect]
     Indication: HEART RATE IRREGULAR
     Route: 048
     Dates: start: 20130626
  2. AMOXICILLIN [Suspect]
     Dosage: 500 MG
     Dates: start: 20131017
  3. DEPO-MEDROL [Suspect]
     Dosage: 80 INJECTION
     Dates: start: 20131017
  4. DECADRON [Suspect]
     Dates: start: 20131017
  5. MELOXICAM [Concomitant]
  6. LASIX [Concomitant]
  7. ACETAMINOPHEN [Concomitant]
  8. LEVOTHYROXINE [Concomitant]
  9. VITAMINS [Concomitant]
  10. LISINOPRIL [Concomitant]

REACTIONS (3)
  - Atrial fibrillation [Unknown]
  - Nasopharyngitis [Unknown]
  - Drug administration error [Unknown]
